FAERS Safety Report 6908901-7 (Version None)
Quarter: 2010Q3

REPORT INFORMATION
  Report Type: 
  Country: None (occurrence: None)
  Receive Date: 20100719
  Receipt Date: 20090728
  Transmission Date: 20110219
  Serious: Yes (Other)
  Sender: FDA-Public Use
  Company Number: US-WYE-H10359709

PATIENT

DRUGS (2)
  1. ADVIL LIQUI-GELS [Suspect]
     Indication: BACK PAIN
     Dosage: 2-3 TABLETS EVERYDAY, ORAL
     Route: 048
     Dates: start: 19890101
  2. LOVAZA [Concomitant]

REACTIONS (1)
  - BLOOD GLUCOSE INCREASED [None]
